FAERS Safety Report 6723832-3 (Version None)
Quarter: 2010Q2

REPORT INFORMATION
  Report Type: 
  Country: None (occurrence: None)
  Receive Date: 20100513
  Receipt Date: 20100406
  Transmission Date: 20101027
  Serious: No
  Sender: FDA-Public Use
  Company Number: A0853729A

PATIENT
  Age: 49 Year
  Sex: Male

DRUGS (3)
  1. TREXIMET [Suspect]
     Indication: MIGRAINE
     Dosage: 1TAB AS REQUIRED
     Route: 048
  2. CELEBREX [Concomitant]
  3. VERAMYST [Concomitant]

REACTIONS (2)
  - CHEST DISCOMFORT [None]
  - PARAESTHESIA [None]
